FAERS Safety Report 15988704 (Version 5)
Quarter: 2019Q2

REPORT INFORMATION
  Report Type: Spontaneous
  Country: NL (occurrence: NL)
  Receive Date: 20190221
  Receipt Date: 20190425
  Transmission Date: 20190711
  Serious: Yes (Disabling, Other)
  Sender: FDA-Public Use
  Company Number: NL-AUROBINDO-AUR-APL-2019-008580

PATIENT

DRUGS (7)
  1. AMOXICILLIN+CLAVULANIC ACID FILM-COATED TABLETS [Suspect]
     Active Substance: AMOXICILLIN\CLAVULANIC ACID
     Indication: SENSATION OF FOREIGN BODY
     Dosage: 3 DOSAGE FORM, DAILY, 1 DF, TID (EVERY 8 HOURS) (500/125MG) 3 DOSAGE FORM, DAILY
     Route: 048
     Dates: start: 20190121, end: 20190121
  2. OMEPRAZOLE. [Concomitant]
     Active Substance: OMEPRAZOLE
     Indication: ABDOMINAL PAIN UPPER
     Dosage: 40 OT(UNIT NOT PROVIDED), UNKNOWN FREQ
     Route: 016
  3. AMOXICILLIN+CLAVULANIC ACID FILM-COATED TABLETS [Suspect]
     Active Substance: AMOXICILLIN\CLAVULANIC ACID
     Indication: DYSPHAGIA
  4. AMOXICILLIN+CLAVULANIC ACID FILM-COATED TABLETS [Suspect]
     Active Substance: AMOXICILLIN\CLAVULANIC ACID
     Indication: BRONCHIAL SECRETION RETENTION
     Dosage: 3 DOSAGE FORM, DAILY, 1 DF, TID (EVERY 8 HOURS) (500/125MG) 3 DOSAGE FORM, DAILY
     Route: 048
     Dates: start: 20190121, end: 20190125
  5. AMOXICILLIN+CLAVULANIC ACID FILM-COATED TABLETS [Suspect]
     Active Substance: AMOXICILLIN\CLAVULANIC ACID
     Indication: INCREASED UPPER AIRWAY SECRETION
  6. OXAZEPAM. [Concomitant]
     Active Substance: OXAZEPAM
     Indication: PRODUCT USED FOR UNKNOWN INDICATION
     Dosage: 10 MILLIGRAM (1-2 DOSES DAILY)
     Route: 065
  7. AMOXICILLIN+CLAVULANIC ACID FILM-COATED TABLETS [Suspect]
     Active Substance: AMOXICILLIN\CLAVULANIC ACID
     Indication: THROAT IRRITATION
     Dosage: UNK, ONCE A DAY, (UNK, UNK, TID)
     Route: 048
     Dates: start: 20190121, end: 20190125

REACTIONS (16)
  - Nausea [Not Recovered/Not Resolved]
  - Gastrointestinal disorder [Not Recovered/Not Resolved]
  - Faeces discoloured [Recovering/Resolving]
  - Chromaturia [Recovering/Resolving]
  - Haematochezia [Recovering/Resolving]
  - Adverse event [Recovered/Resolved]
  - Diarrhoea [Unknown]
  - Jaundice [Not Recovered/Not Resolved]
  - Weight decreased [Unknown]
  - Malaise [Not Recovered/Not Resolved]
  - Vomiting [Not Recovered/Not Resolved]
  - Pruritus [Not Recovered/Not Resolved]
  - Dumping syndrome [Recovered/Resolved]
  - Constipation [Not Recovered/Not Resolved]
  - Abdominal pain upper [Recovered/Resolved]
  - Jaundice cholestatic [Not Recovered/Not Resolved]

NARRATIVE: CASE EVENT DATE: 201901
